FAERS Safety Report 6765110-2 (Version None)
Quarter: 2010Q2

REPORT INFORMATION
  Report Type: 
  Country: None (occurrence: None)
  Receive Date: 20100610
  Receipt Date: 20100602
  Transmission Date: 20101027
  Serious: Yes (Hospitalization, Other)
  Sender: FDA-Public Use
  Company Number: US-AMGEN-KDL416178

PATIENT
  Sex: Male

DRUGS (1)
  1. ENBREL [Suspect]
     Indication: PSORIATIC ARTHROPATHY
     Route: 058
     Dates: start: 20080602

REACTIONS (5)
  - CELLULITIS [None]
  - ELECTRICAL BURN [None]
  - SKIN LACERATION [None]
  - THERMAL BURN [None]
  - THERMAL BURNS OF EYE [None]
